FAERS Safety Report 5063918-5 (Version None)
Quarter: 2006Q3

REPORT INFORMATION
  Report Type: 
  Country: None (occurrence: None)
  Receive Date: 20060724
  Receipt Date: 20060714
  Transmission Date: 20061208
  Serious: Yes (Other)
  Sender: FDA-Public Use
  Company Number: 2005136501

PATIENT
  Age: 81 Year
  Sex: Male
  Weight: 90.7194 kg

DRUGS (5)
  1. NEURONTIN [Suspect]
     Indication: POST HERPETIC NEURALGIA
     Dosage: 900 MG (300 MG, 3 IN 1 D, ORAL
     Route: 048
     Dates: start: 20040101
  2. LYRICA [Suspect]
     Indication: POST HERPETIC NEURALGIA
     Dosage: 300 MG (100 MG, 3 IN 1 D), ORAL
     Route: 048
     Dates: start: 20050801
  3. CYMBALTA [Concomitant]
  4. TRILEPTAL [Concomitant]
  5. XANAX [Concomitant]

REACTIONS (12)
  - BALANCE DISORDER [None]
  - BRONCHITIS [None]
  - CONDITION AGGRAVATED [None]
  - DIZZINESS [None]
  - FEELING DRUNK [None]
  - INCORRECT DOSE ADMINISTERED [None]
  - LIGAMENT RUPTURE [None]
  - MEMORY IMPAIRMENT [None]
  - PHARMACEUTICAL PRODUCT COMPLAINT [None]
  - POST HERPETIC NEURALGIA [None]
  - ROAD TRAFFIC ACCIDENT [None]
  - VERTIGO POSITIONAL [None]
